FAERS Safety Report 5416592-X (Version None)
Quarter: 2007Q3

REPORT INFORMATION
  Report Type: 
  Country: None (occurrence: None)
  Receive Date: 20070816
  Receipt Date: 20070809
  Transmission Date: 20080115
  Serious: Yes (Other)
  Sender: FDA-Public Use
  Company Number: HQWYE558015AUG07

PATIENT
  Sex: Female
  Weight: 9.56 kg

DRUGS (3)
  1. IBUPROFEN TABLETS [Suspect]
     Dosage: UNKNOWN
     Route: 065
  2. BLINDED THERAPY [Concomitant]
     Indication: IMMUNISATION
     Dosage: 0.5 ML
     Route: 030
     Dates: start: 20070307, end: 20070307
  3. INFANRIX HEXA [Concomitant]
     Indication: IMMUNISATION
     Dosage: 0.5 ML
     Route: 055
     Dates: start: 20070307, end: 20070307

REACTIONS (2)
  - FEBRILE CONVULSION [None]
  - PHARYNGOTONSILLITIS [None]
